FAERS Safety Report 23956475 (Version 2)
Quarter: 2024Q3

REPORT INFORMATION
  Report Type: Spontaneous
  Country: IT (occurrence: IT)
  Receive Date: 20240610
  Receipt Date: 20240723
  Transmission Date: 20241017
  Serious: Yes (Hospitalization, Other)
  Sender: AUROBINDO
  Company Number: IT-MINISAL02-987740

PATIENT
  Age: 17 Year
  Sex: Male

DRUGS (3)
  1. ALPRAZOLAM [Suspect]
     Active Substance: ALPRAZOLAM
     Indication: Product used for unknown indication
     Dosage: UNK
     Route: 065
     Dates: start: 20240518, end: 20240518
  2. OLANZAPINE [Concomitant]
     Active Substance: OLANZAPINE
     Indication: Schizotypal personality disorder
     Dosage: 15 MILLIGRAM I DO NOT KNOW THE START OF THERAPY
     Route: 048
  3. LITHIUM SULFATE [Concomitant]
     Active Substance: LITHIUM SULFATE
     Indication: Schizotypal personality disorder
     Dosage: 83 MILLIGRAM, DAILY THE START OF THERAPY IS NOT KNOWN
     Route: 048

REACTIONS (1)
  - Intentional self-injury [Recovered/Resolved]

NARRATIVE: CASE EVENT DATE: 20240518
